FAERS Safety Report 6945193-7 (Version None)
Quarter: 2010Q3

REPORT INFORMATION
  Report Type: 
  Country: None (occurrence: None)
  Receive Date: 20100827
  Receipt Date: 20100601
  Transmission Date: 20110219
  Serious: No
  Sender: FDA-Public Use
  Company Number: US-KINGPHARMUSA00001-K201000686

PATIENT
  Age: 86 Year
  Sex: Female
  Weight: 64.399 kg

DRUGS (7)
  1. FLECTOR [Suspect]
     Indication: MUSCULOSKELETAL PAIN
     Dosage: 1 PATCH, Q12H
     Route: 061
     Dates: start: 20100401, end: 20100401
  2. FLECTOR [Suspect]
     Dosage: 1 PATCH, QHS
     Route: 061
     Dates: start: 20100501
  3. DILANTIN [Concomitant]
     Dosage: 2 DF, QD
  4. MULTI-VITAMIN [Concomitant]
     Dosage: UNK
  5. PRESERVISION LUTEIN EYE VITA.+MIN.SUP.SOFTG. [Concomitant]
     Dosage: UNK
  6. CALCIUM WITH VITAMIN D [Concomitant]
     Dosage: UNK
  7. EYE DROPS [Concomitant]
     Dosage: UNK

REACTIONS (1)
  - APPLICATION SITE RASH [None]
